FAERS Safety Report 14823761 (Version 1)
Quarter: 2018Q2

REPORT INFORMATION
  Report Type: Spontaneous
  Country: US (occurrence: US)
  Receive Date: 20180428
  Receipt Date: 20180428
  Transmission Date: 20180711
  Serious: Yes (Other)
  Sender: FDA-Public Use
  Company Number: US-AMGEN-USASP2018055689

PATIENT
  Sex: Male

DRUGS (1)
  1. REPATHA [Suspect]
     Active Substance: EVOLOCUMAB
     Indication: BLOOD CHOLESTEROL INCREASED
     Dosage: UNK
     Route: 065

REACTIONS (4)
  - Incoherent [Recovered/Resolved]
  - Disorientation [Recovered/Resolved]
  - Disturbance in attention [Recovered/Resolved]
  - Arthralgia [Recovered/Resolved]
